FAERS Safety Report 9798065 (Version 4)
Quarter: 2014Q3

REPORT INFORMATION
  Report Type: Spontaneous
  Country: US (occurrence: US)
  Receive Date: 20140106
  Receipt Date: 20140821
  Transmission Date: 20150326
  Serious: Yes (Death, Hospitalization, Other)
  Sender: FDA-Public Use
  Company Number: US-MERCK-1401USA000721

PATIENT
  Sex: Male
  Weight: 97.96 kg

DRUGS (2)
  1. JANUVIA [Suspect]
     Active Substance: SITAGLIPTIN PHOSPHATE
     Indication: TYPE 2 DIABETES MELLITUS
     Dosage: 100 MG, DAILY
     Route: 048
     Dates: start: 20100712, end: 20101011
  2. JANUVIA [Suspect]
     Active Substance: SITAGLIPTIN PHOSPHATE
     Dosage: 100 MG, 1/2 TAB DAILY
     Route: 048
     Dates: start: 20100929

REACTIONS (29)
  - Wrong technique in drug usage process [Unknown]
  - Pilonidal cyst [Unknown]
  - Pancreatic carcinoma recurrent [Unknown]
  - Hypoglycaemia [Unknown]
  - Peripheral swelling [Unknown]
  - Depression [Unknown]
  - Anxiety [Unknown]
  - Pancreaticoduodenectomy [Unknown]
  - Small intestinal obstruction [Recovered/Resolved]
  - Splenectomy [Unknown]
  - Basal cell carcinoma [Unknown]
  - Bile duct stent insertion [Unknown]
  - Anaemia [Unknown]
  - Hyperkeratosis [Unknown]
  - Migraine [Unknown]
  - Rosacea [Unknown]
  - Gastrointestinal haemorrhage [Unknown]
  - Orthostatic hypotension [Unknown]
  - Peritonitis [Unknown]
  - Hyperlipidaemia [Unknown]
  - Pleural effusion [Unknown]
  - Ascites [Unknown]
  - Blood sodium decreased [Unknown]
  - Hypertensive heart disease [Unknown]
  - Hyperglycaemia [Unknown]
  - Pancreatic carcinoma [Fatal]
  - Thrombosis [Unknown]
  - Hypoaesthesia [Unknown]
  - Gastrooesophageal reflux disease [Unknown]

NARRATIVE: CASE EVENT DATE: 20100929
